FAERS Safety Report 9429240 (Version 1)
Quarter: 2013Q3

REPORT INFORMATION
  Report Type: Spontaneous
  Country: US (occurrence: US)
  Receive Date: 20130730
  Receipt Date: 20130730
  Transmission Date: 20140515
  Serious: No
  Sender: FDA-Public Use
  Company Number: US-009507513-1307USA014458

PATIENT
  Age: 20 Year
  Sex: Female
  Weight: 112.47 kg

DRUGS (1)
  1. IMPLANON [Suspect]
     Dosage: 1 ROD, EVERY 3 YEARS
     Route: 059
     Dates: start: 20100827, end: 201307

REACTIONS (2)
  - Device breakage [Unknown]
  - No adverse event [Unknown]
